FAERS Safety Report 9926127 (Version 1)
Quarter: 2014Q1

REPORT INFORMATION
  Report Type: Spontaneous
  Country: US (occurrence: US)
  Receive Date: 20140226
  Receipt Date: 20140226
  Transmission Date: 20141002
  Serious: No
  Sender: FDA-Public Use
  Company Number: US-TEVA-465058USA

PATIENT
  Age: 18 Year
  Sex: Female
  Weight: 65.83 kg

DRUGS (2)
  1. PARAGARD 380A [Suspect]
     Indication: CONTRACEPTION
     Route: 015
     Dates: start: 201307, end: 20140217
  2. ANTIBIOTICS [Concomitant]
     Indication: INFLUENZA

REACTIONS (4)
  - Menorrhagia [Recovered/Resolved]
  - Pelvic pain [Recovered/Resolved]
  - Dyspareunia [Unknown]
  - Device expulsion [Recovered/Resolved]
